FAERS Safety Report 4359113-5 (Version None)
Quarter: 2004Q2

REPORT INFORMATION
  Report Type: 
  Country: None (occurrence: None)
  Receive Date: 20040512
  Receipt Date: 20040429
  Transmission Date: 20050107
  Serious: Yes (Hospitalization)
  Sender: FDA-Public Use
  Company Number: 2004AP02514

PATIENT
  Age: 67 Year
  Sex: Female
  Weight: 33 kg

DRUGS (4)
  1. MEROPEN [Suspect]
     Indication: PNEUMONIA BACTERIAL
     Dosage: 0.5 G BID IVD
     Route: 041
     Dates: start: 20030930, end: 20031006
  2. CARBENIN [Suspect]
     Indication: PNEUMONIA BACTERIAL
     Dosage: 0.5 GTT BID IVD
     Route: 041
     Dates: start: 20030924, end: 20030929
  3. NEOPHYLLIN [Concomitant]
  4. LASIX [Concomitant]

REACTIONS (3)
  - CHEST X-RAY ABNORMAL [None]
  - INTERSTITIAL LUNG DISEASE [None]
  - PO2 DECREASED [None]
